FAERS Safety Report 4618991-2 (Version None)
Quarter: 2005Q1

REPORT INFORMATION
  Report Type: 
  Country: None (occurrence: None)
  Receive Date: 20050325
  Receipt Date: 20050311
  Transmission Date: 20050727
  Serious: Yes (Life-Threatening)
  Sender: FDA-Public Use
  Company Number: 200510896FR

PATIENT
  Age: 85 Year
  Sex: Female
  Weight: 100 kg

DRUGS (3)
  1. LASILIX [Suspect]
     Route: 048
  2. DIFFU K [Concomitant]
     Route: 048
  3. ZESTRIL [Concomitant]
     Route: 048

REACTIONS (12)
  - ATRIAL FIBRILLATION [None]
  - ATRIOVENTRICULAR BLOCK COMPLETE [None]
  - BRADYCARDIA [None]
  - CARDIAC ARREST [None]
  - ECCHYMOSIS [None]
  - FACE INJURY [None]
  - FACIAL BONES FRACTURE [None]
  - INJURY [None]
  - LOSS OF CONSCIOUSNESS [None]
  - SYNCOPE [None]
  - TORSADE DE POINTES [None]
  - VENTRICULAR EXTRASYSTOLES [None]
